FAERS Safety Report 5851694-5 (Version None)
Quarter: 2008Q3

REPORT INFORMATION
  Report Type: 
  Country: None (occurrence: None)
  Receive Date: 20080820
  Receipt Date: 20080730
  Transmission Date: 20090109
  Serious: No
  Sender: FDA-Public Use
  Company Number: US-BOEHRINGER INGELHEIM GMBH, GERMANY-2008-BP-12031BP

PATIENT
  Age: 45 Year
  Sex: Female

DRUGS (12)
  1. ATROVENT HFA [Suspect]
     Indication: ASTHMA EXERCISE INDUCED
     Route: 045
     Dates: start: 20080605
  2. QVAR 40 [Concomitant]
  3. LITHIUM CARBONATE [Concomitant]
  4. LAMICTAL [Concomitant]
  5. PRAZOSIN HCL [Concomitant]
  6. ATENOLOL [Concomitant]
  7. HYOMAX SR [Concomitant]
     Indication: FAECAL INCONTINENCE
  8. HYOMAX SR [Concomitant]
     Indication: URINARY INCONTINENCE
  9. MELOXICAM [Concomitant]
     Indication: PAIN
  10. MELOXICAM [Concomitant]
     Indication: INFLAMMATION
  11. AMBIEN [Concomitant]
  12. NORCO [Concomitant]

REACTIONS (4)
  - DIARRHOEA [None]
  - FAECAL INCONTINENCE [None]
  - POLLAKIURIA [None]
  - URINARY INCONTINENCE [None]
